FAERS Safety Report 12970025 (Version 1)
Quarter: 2016Q4

REPORT INFORMATION
  Report Type: Spontaneous
  Country: IT (occurrence: IT)
  Receive Date: 20161123
  Receipt Date: 20161123
  Transmission Date: 20170207
  Serious: Yes (Other)
  Sender: FDA-Public Use
  Company Number: IT-GILEAD-2016-0244624

PATIENT
  Age: 46 Year
  Sex: Male

DRUGS (4)
  1. LAMIVUDINA MYLAN [Concomitant]
  2. NORVIR [Concomitant]
     Active Substance: RITONAVIR
  3. EVIPLERA [Suspect]
     Active Substance: EMTRICITABINE\RILPIVIRINE\TENOFOVIR DISOPROXIL FUMARATE
     Indication: HIV INFECTION
     Dosage: 1 DF, QD
     Route: 048
     Dates: start: 20161111, end: 20161115
  4. REYATAZ [Concomitant]
     Active Substance: ATAZANAVIR SULFATE

REACTIONS (2)
  - Dizziness [Unknown]
  - Dysentery [Unknown]

NARRATIVE: CASE EVENT DATE: 20161112
